FAERS Safety Report 15101386 (Version 8)
Quarter: 2020Q4

REPORT INFORMATION
  Report Type: Spontaneous
  Country: BE (occurrence: BE)
  Receive Date: 20180703
  Receipt Date: 20201021
  Transmission Date: 20210113
  Serious: Yes (Other)
  Sender: FDA-Public Use
  Company Number: BE-MYLANLABS-2018M1048196

PATIENT
  Age: 66 Year
  Sex: Female

DRUGS (29)
  1. LORAZEPAM. [Suspect]
     Active Substance: LORAZEPAM
     Indication: PRODUCT USED FOR UNKNOWN INDICATION
     Dosage: UNK
     Route: 061
  2. DIAZEPAM. [Suspect]
     Active Substance: DIAZEPAM
     Indication: PRODUCT USED FOR UNKNOWN INDICATION
     Dosage: UNK
  3. CLOTIAZEPAM [Suspect]
     Active Substance: CLOTIAZEPAM
     Indication: PRODUCT USED FOR UNKNOWN INDICATION
     Dosage: UNK
  4. CLOZAPINE. [Suspect]
     Active Substance: CLOZAPINE
     Dosage: AIRBORNE EXPOSURE, CRUSHED TABLETS UP TO FIVE TIMES A DAY
     Route: 055
  5. TRAZODONE [Suspect]
     Active Substance: TRAZODONE HYDROCHLORIDE
     Indication: PRODUCT USED FOR UNKNOWN INDICATION
     Dosage: UNK
     Route: 065
  6. OMEPRAZOLE. [Suspect]
     Active Substance: OMEPRAZOLE
     Dosage: AIRBORNE EXPOSURE, CRUSHED TABLETS UP TO FIVE TIMES A DAY
     Route: 065
  7. OMEPRAZOLE. [Suspect]
     Active Substance: OMEPRAZOLE
     Dosage: AIRBORNE EXPOSURE, CRUSHED TABLETS UP TO FIVE TIMES A DAY
     Route: 061
  8. SELOZOK [Suspect]
     Active Substance: METOPROLOL SUCCINATE
     Dosage: AIRBORNE EXPOSURE, CRUSHED TABLETS UP TO FIVE TIMES A DAY
     Route: 061
  9. CLOTIAZEPAM [Suspect]
     Active Substance: CLOTIAZEPAM
     Dosage: SKIN PATCH TEST
     Route: 055
  10. ROPINIROLE. [Suspect]
     Active Substance: ROPINIROLE
     Indication: PRODUCT USED FOR UNKNOWN INDICATION
     Dosage: UNK
  11. PARACETAMOL [Suspect]
     Active Substance: ACETAMINOPHEN
     Indication: PRODUCT USED FOR UNKNOWN INDICATION
     Dosage: UNK
     Route: 065
  12. OXYBUTYNIN. [Suspect]
     Active Substance: OXYBUTYNIN CHLORIDE
     Indication: PRODUCT USED FOR UNKNOWN INDICATION
     Dosage: UNK
     Route: 065
  13. OMEPRAZOLE. [Suspect]
     Active Substance: OMEPRAZOLE
     Indication: PRODUCT USED FOR UNKNOWN INDICATION
     Dosage: UNK
  14. OMEPRAZOLE. [Suspect]
     Active Substance: OMEPRAZOLE
     Dosage: UNK
     Route: 061
  15. TETRAZEPAM [Suspect]
     Active Substance: TETRAZEPAM
     Indication: PRODUCT USED FOR UNKNOWN INDICATION
     Dosage: UNK
     Route: 061
  16. SELOZOK [Suspect]
     Active Substance: METOPROLOL SUCCINATE
     Indication: PRODUCT USED FOR UNKNOWN INDICATION
     Dosage: UNK
  17. CLOZAPINE. [Suspect]
     Active Substance: CLOZAPINE
     Indication: PRODUCT USED FOR UNKNOWN INDICATION
     Dosage: UNK
  18. BROMAZEPAM [Suspect]
     Active Substance: BROMAZEPAM
     Indication: PRODUCT USED FOR UNKNOWN INDICATION
     Dosage: UNK
  19. SELOZOK [Suspect]
     Active Substance: METOPROLOL SUCCINATE
     Dosage: UNK
     Route: 061
  20. ESOMEPRAZOLE. [Suspect]
     Active Substance: ESOMEPRAZOLE MAGNESIUM
     Indication: PRODUCT USED FOR UNKNOWN INDICATION
     Dosage: UNK
     Route: 065
  21. TETRAZEPAM [Suspect]
     Active Substance: TETRAZEPAM
     Dosage: AIRBORNE EXPOSURE, CRUSHED TABLETS UP TO FIVE TIMES A DAY
     Route: 065
  22. ROPINIROLE. [Suspect]
     Active Substance: ROPINIROLE
     Dosage: AIRBORNE EXPOSURE, CRUSHED TABLETS UP TO FIVE TIMES A DAY
     Route: 065
  23. LORAZEPAM. [Suspect]
     Active Substance: LORAZEPAM
     Dosage: AIRBORNE EXPOSURE, CRUSHED TABLETS UP TO FIVE TIMES A DAY
     Route: 065
  24. ARIPIPRAZOLE. [Suspect]
     Active Substance: ARIPIPRAZOLE
     Indication: PRODUCT USED FOR UNKNOWN INDICATION
     Dosage: UNK
     Route: 065
  25. BACLOFEN. [Suspect]
     Active Substance: BACLOFEN
     Indication: PRODUCT USED FOR UNKNOWN INDICATION
     Dosage: UNK
     Route: 065
  26. LEVODOPA [Suspect]
     Active Substance: LEVODOPA
     Dosage: AIRBORNE EXPOSURE, CRUSHED TABLETS UP TO FIVE TIMES A DAY
     Route: 055
  27. DIAZEPAM. [Suspect]
     Active Substance: DIAZEPAM
     Dosage: AIRBORNE EXPOSURE, CRUSHED TABLETS UP TO FIVE TIMES A DAY
     Route: 065
  28. LEVODOPA [Suspect]
     Active Substance: LEVODOPA
     Indication: PRODUCT USED FOR UNKNOWN INDICATION
     Dosage: UNK
  29. VALIUM [Suspect]
     Active Substance: DIAZEPAM
     Indication: PRODUCT USED FOR UNKNOWN INDICATION
     Dosage: UNK
     Route: 055

REACTIONS (12)
  - Eczema eyelids [Recovered/Resolved]
  - Occupational exposure to product [Unknown]
  - Therapeutic product cross-reactivity [Recovered/Resolved]
  - Exposure via skin contact [Unknown]
  - Eczema [Recovered/Resolved]
  - Dermatitis [Recovered/Resolved]
  - Intentional product misuse [Unknown]
  - Accidental exposure to product [Recovered/Resolved]
  - Dermatitis contact [Recovered/Resolved]
  - Pruritus [Recovered/Resolved]
  - Burning sensation [Recovered/Resolved]
  - Wrong technique in product usage process [Recovered/Resolved]

NARRATIVE: CASE EVENT DATE: 2009
